FAERS Safety Report 7363674-1 (Version None)
Quarter: 2011Q1

REPORT INFORMATION
  Report Type: 
  Country: None (occurrence: None)
  Receive Date: 20110321
  Receipt Date: 20110314
  Transmission Date: 20110831
  Serious: Yes (Hospitalization)
  Sender: FDA-Public Use
  Company Number: IT-JNJFOC-20110305850

PATIENT
  Sex: Male

DRUGS (1)
  1. CAELYX [Suspect]
     Indication: MYCOSIS FUNGOIDES
     Route: 042

REACTIONS (3)
  - ANGIOEDEMA [None]
  - EPIGLOTTIC OEDEMA [None]
  - OFF LABEL USE [None]
